FAERS Safety Report 7752539-9 (Version None)
Quarter: 2011Q3

REPORT INFORMATION
  Report Type: 
  Country: None (occurrence: None)
  Receive Date: 20110915
  Receipt Date: 20110909
  Transmission Date: 20111222
  Serious: Yes (Hospitalization, Other)
  Sender: FDA-Public Use
  Company Number: US-AMGEN-USASP2011025731

PATIENT
  Age: 65 Year
  Sex: Female

DRUGS (3)
  1. ENBREL [Suspect]
     Dosage: UNK
     Dates: start: 20110908
  2. TREXALL [Concomitant]
     Dosage: 1 MG, QWK
     Dates: start: 19900101
  3. ENBREL [Suspect]
     Indication: RHEUMATOID ARTHRITIS
     Dosage: 50 MG, QWK
     Dates: start: 20000101, end: 20101014

REACTIONS (5)
  - INTERVERTEBRAL DISC PROTRUSION [None]
  - HYPERPARATHYROIDISM [None]
  - RHEUMATOID ARTHRITIS [None]
  - OSTEOPOROSIS [None]
  - BACK PAIN [None]
